FAERS Safety Report 7685327-2 (Version None)
Quarter: 2011Q3

REPORT INFORMATION
  Report Type: 
  Country: None (occurrence: None)
  Receive Date: 20110816
  Receipt Date: 20110801
  Transmission Date: 20111222
  Serious: Yes (Death)
  Sender: FDA-Public Use
  Company Number: JO-SANOFI-AVENTIS-2011SA050425

PATIENT

DRUGS (10)
  1. DICLOFENAC SODIUM [Suspect]
     Route: 065
  2. COUMADIN [Suspect]
     Route: 065
  3. DOPAMINE HYDROCHLORIDE [Suspect]
     Route: 065
  4. FEXOFENADINE HCL [Suspect]
     Route: 065
  5. CIPROFLOXACIN HYDROCHLORIDE [Suspect]
     Route: 065
  6. RANITIDINE [Suspect]
     Route: 065
  7. NITROGLYCERIN [Suspect]
     Route: 065
  8. PREDNISOLONE [Suspect]
     Route: 065
  9. PIROXICAM [Suspect]
     Route: 065
  10. CEFUROXIME [Suspect]
     Route: 065

REACTIONS (12)
  - LOWER GASTROINTESTINAL HAEMORRHAGE [None]
  - RASH [None]
  - PRURITUS [None]
  - DYSPNOEA [None]
  - URTICARIA [None]
  - TACHYCARDIA [None]
  - INTERNATIONAL NORMALISED RATIO INCREASED [None]
  - HYPOTENSION [None]
  - RENAL IMPAIRMENT [None]
  - NAUSEA [None]
  - CUSHINGOID [None]
  - CONSTIPATION [None]
